FAERS Safety Report 19206066 (Version 1)
Quarter: 2021Q2

REPORT INFORMATION
  Report Type: Spontaneous
  Country: US (occurrence: US)
  Receive Date: 20210503
  Receipt Date: 20210503
  Transmission Date: 20210717
  Serious: No
  Sender: FDA-Public Use
  Company Number: None

PATIENT
  Age: 65 Year
  Sex: Female
  Weight: 99 kg

DRUGS (20)
  1. METROPROLOL [Concomitant]
     Active Substance: METOPROLOL
  2. ENALAPRIL [Concomitant]
     Active Substance: ENALAPRIL
  3. METFORMIN [Concomitant]
     Active Substance: METFORMIN HYDROCHLORIDE
  4. ALLEGRA [Concomitant]
     Active Substance: FEXOFENADINE HYDROCHLORIDE
  5. PREGABALIN. [Concomitant]
     Active Substance: PREGABALIN
  6. SIMVASTATIN. [Concomitant]
     Active Substance: SIMVASTATIN
  7. TIZANIDINE. [Concomitant]
     Active Substance: TIZANIDINE
  8. TRAZODONE [Concomitant]
     Active Substance: TRAZODONE HYDROCHLORIDE
  9. TRAMADOL. [Concomitant]
     Active Substance: TRAMADOL
  10. BIOTIN [Concomitant]
     Active Substance: BIOTIN
  11. MULTIVITAMIN [Concomitant]
     Active Substance: VITAMINS
  12. STOOL SOFTENER (DOCUSATE) [Concomitant]
     Active Substance: DOCUSATE
  13. LAXATIVE [Concomitant]
     Active Substance: UNSPECIFIED INGREDIENT
  14. MINOCYCLINE [Suspect]
     Active Substance: MINOCYCLINE HYDROCHLORIDE
     Indication: ACNE
     Dosage: ?          QUANTITY:1 CAPSULE(S);?
     Route: 048
     Dates: start: 20200817, end: 20200913
  15. ROPINIROLE. [Concomitant]
     Active Substance: ROPINIROLE
  16. CYMBALTA [Concomitant]
     Active Substance: DULOXETINE HYDROCHLORIDE
  17. OZEMPIC [Concomitant]
     Active Substance: SEMAGLUTIDE
  18. LORATIDINE [Concomitant]
     Active Substance: LORATADINE
  19. IRON SUPPLEMENT [Concomitant]
     Active Substance: IRON
  20. PROBIOTICS [Concomitant]
     Active Substance: PROBIOTICS NOS

REACTIONS (4)
  - Therapy change [None]
  - Skin exfoliation [None]
  - Urticaria [None]
  - Skin haemorrhage [None]

NARRATIVE: CASE EVENT DATE: 20200817
